FAERS Safety Report 7737549-X (Version None)
Quarter: 2011Q3

REPORT INFORMATION
  Report Type: 
  Country: None (occurrence: None)
  Receive Date: 20110908
  Receipt Date: 20110902
  Transmission Date: 20111222
  Serious: Yes (Hospitalization, Other)
  Sender: FDA-Public Use
  Company Number: US-PFIZER INC-2011206085

PATIENT
  Sex: Male
  Weight: 87.1 kg

DRUGS (6)
  1. DILANTIN [Suspect]
     Indication: EPILEPSY
     Dosage: TWO 100 MG CAPSULES IN THE MORNING, TWO IN THE AFTERNOON, AND ONE AT NIGHT
     Route: 048
  2. ISOSORBIDE [Concomitant]
     Dosage: 60 MG, DAILY
  3. FLUOMYCIN [Concomitant]
     Dosage: 500 MG, DAILY
  4. ACETYLSALICYLIC ACID [Concomitant]
     Dosage: 325 MG, DAILY
  5. DILTIAZEM HCL [Interacting]
     Dosage: 60 MG, 2X/DAY
  6. PRAVASTATIN [Concomitant]
     Dosage: 40 MG, DAILY

REACTIONS (4)
  - DRUG INTERACTION [None]
  - ANTICONVULSANT DRUG LEVEL INCREASED [None]
  - CONVULSION [None]
  - ARTERIAL STENT INSERTION [None]
